FAERS Safety Report 5625687-7 (Version None)
Quarter: 2008Q1

REPORT INFORMATION
  Report Type: 
  Country: None (occurrence: None)
  Receive Date: 20080207
  Receipt Date: 20080207
  Transmission Date: 20080703
  Serious: No
  Sender: FDA-Public Use
  Company Number: None

PATIENT
  Sex: Male
  Weight: 122.4712 kg

DRUGS (1)
  1. GEODON [Suspect]
     Indication: BIPOLAR DISORDER
     Dosage: 1 CAPSULE TWICE DAILY
     Dates: start: 20070215

REACTIONS (3)
  - BRAIN INJURY [None]
  - CONVULSION [None]
  - RENAL FAILURE [None]
